FAERS Safety Report 16727047 (Version 2)
Quarter: 2019Q3

REPORT INFORMATION
  Report Type: Spontaneous
  Country: IE (occurrence: IE)
  Receive Date: 20190821
  Receipt Date: 20190909
  Transmission Date: 20191005
  Serious: Yes (Other)
  Sender: FDA-Public Use
  Company Number: PHHY2019IE192966

PATIENT
  Sex: Female

DRUGS (2)
  1. TEKTURNA [Suspect]
     Active Substance: ALISKIREN HEMIFUMARATE
     Indication: PRODUCT USED FOR UNKNOWN INDICATION
     Dosage: UNK
     Route: 065
  2. DIOVAN [Suspect]
     Active Substance: VALSARTAN
     Indication: PRODUCT USED FOR UNKNOWN INDICATION
     Dosage: UNK
     Route: 065

REACTIONS (10)
  - Musculoskeletal stiffness [Unknown]
  - Spinal deformity [Unknown]
  - Deformity [Unknown]
  - Loss of consciousness [Unknown]
  - Headache [Unknown]
  - Swelling [Unknown]
  - Peripheral swelling [Unknown]
  - Swelling face [Unknown]
  - Intervertebral disc degeneration [Unknown]
  - Pain [Unknown]
